FAERS Safety Report 8808359 (Version 1)
Quarter: 2012Q4

REPORT INFORMATION
  Report Type: Spontaneous
  Country: US (occurrence: None)
  Receive Date: 20120920
  Receipt Date: 20120920
  Transmission Date: 20130627
  Serious: No
  Sender: FDA-Public Use
  Company Number: None

PATIENT
  Age: 61 Year
  Sex: Female

DRUGS (1)
  1. AVONEX [Suspect]
     Dosage: 30 mcg, once a week, intramuscularly
     Route: 030
     Dates: start: 20120823

REACTIONS (4)
  - Aggression [None]
  - Chills [None]
  - Tremor [None]
  - Headache [None]
